FAERS Safety Report 13961538 (Version 4)
Quarter: 2025Q4

REPORT INFORMATION
  Report Type: Spontaneous
  Country: MX (occurrence: MX)
  Receive Date: 20170912
  Receipt Date: 20251117
  Transmission Date: 20260118
  Serious: Yes (Death, Life-Threatening, Hospitalization, Other)
  Sender: SANOFI AVENTIS
  Company Number: None

PATIENT
  Age: 56 Year
  Sex: Female

DRUGS (5)
  1. PREDNISONE [Suspect]
     Active Substance: PREDNISONE
     Indication: Chronic kidney disease
     Dosage: 5 MG,QD
  2. THYMOGLOBULIN [Suspect]
     Active Substance: LAPINE T-LYMPHOCYTE IMMUNE GLOBULIN
     Indication: Chronic kidney disease
     Dosage: 5 MG/KG WEIGHT
     Route: 041
  3. MYCOPHENOLATE MOFETIL [Suspect]
     Active Substance: MYCOPHENOLATE MOFETIL
     Indication: Chronic kidney disease
     Dosage: 1 G,Q12H
  4. TACROLIMUS [Suspect]
     Active Substance: TACROLIMUS
     Indication: Chronic kidney disease
     Dosage: 1 G, Q12H
  5. IMIPENEM [Suspect]
     Active Substance: IMIPENEM
     Indication: Chronic kidney disease
     Dosage: 1 G, Q8H
     Route: 042

REACTIONS (7)
  - Pulmonary mucormycosis [Fatal]
  - Pyrexia [Fatal]
  - Cough [Fatal]
  - Productive cough [Fatal]
  - Dyspnoea exertional [Fatal]
  - Disease progression [Fatal]
  - Haemoptysis [Fatal]
